FAERS Safety Report 14599292 (Version 2)
Quarter: 2018Q1

REPORT INFORMATION
  Report Type: Spontaneous
  Country: US (occurrence: US)
  Receive Date: 20180305
  Receipt Date: 20180309
  Transmission Date: 20180509
  Serious: No
  Sender: FDA-Public Use
  Company Number: US-CELGENEUS-USA-20180300776

PATIENT
  Age: 83 Year
  Sex: Female

DRUGS (3)
  1. ALLEGRA ALLERGY 24 HR RELIEF [Concomitant]
     Indication: PARANASAL SINUS HYPERSECRETION
     Route: 065
  2. OTEZLA [Suspect]
     Active Substance: APREMILAST
     Indication: PRODUCT USED FOR UNKNOWN INDICATION
     Dosage: 60 MILLIGRAM
     Route: 048
     Dates: start: 20180203
  3. ALLEGRA ALLERGY 24 HR RELIEF [Concomitant]
     Indication: HYPERSENSITIVITY

REACTIONS (3)
  - Gastrointestinal disorder [Unknown]
  - Frequent bowel movements [Unknown]
  - Ear lobe infection [Unknown]

NARRATIVE: CASE EVENT DATE: 201802
